FAERS Safety Report 18340447 (Version 6)
Quarter: 2022Q3

REPORT INFORMATION
  Report Type: Report from Study
  Country: FR (occurrence: FR)
  Receive Date: 20201002
  Receipt Date: 20220701
  Transmission Date: 20221027
  Serious: Yes (Death, Life-Threatening, Hospitalization, Other)
  Sender: FDA-Public Use
  Company Number: FR-BRISTOL-MYERS SQUIBB COMPANY-BMS-2020-080810

PATIENT
  Age: 79 Year
  Sex: Female
  Weight: 74 kg

DRUGS (20)
  1. IPILIMUMAB [Suspect]
     Active Substance: IPILIMUMAB
     Indication: Colorectal cancer
     Route: 042
     Dates: start: 20200901, end: 20200901
  2. OXALIPLATIN [Suspect]
     Active Substance: OXALIPLATIN
     Indication: Colorectal cancer
     Dosage: MOST RECENT DOSE(155 MILLIGRAM) WAS ON 13-AUG-2020
     Route: 042
     Dates: start: 20200716, end: 20200716
  3. OXALIPLATIN [Suspect]
     Active Substance: OXALIPLATIN
     Route: 042
     Dates: start: 20200813, end: 20200813
  4. LEUCOVORIN [Suspect]
     Active Substance: LEUCOVORIN
     Indication: Colorectal cancer
     Dosage: MOST RECENT DOSE 730 MILLIGRAM WAS ON 13-AUG-2020
     Route: 042
     Dates: start: 20200716, end: 20200716
  5. LEUCOVORIN [Suspect]
     Active Substance: LEUCOVORIN
     Route: 042
     Dates: start: 20200813, end: 20200813
  6. FLUOROURACIL [Suspect]
     Active Substance: FLUOROURACIL
     Indication: Colorectal cancer
     Dosage: 4300 MILLIGRAM (16-JUL-2020 TO 18-JUL-2020)?730 MILLIGRAM (13-AUG-2020)?MOST RECENT DOSE 4350MILLIGR
     Route: 042
     Dates: start: 20200716, end: 20200716
  7. FLUOROURACIL [Suspect]
     Active Substance: FLUOROURACIL
     Route: 042
     Dates: start: 20200716, end: 20200718
  8. FLUOROURACIL [Suspect]
     Active Substance: FLUOROURACIL
     Route: 042
     Dates: start: 20200813, end: 20200813
  9. FLUOROURACIL [Suspect]
     Active Substance: FLUOROURACIL
     Route: 042
     Dates: start: 20200813, end: 20200815
  10. REPAGLINIDE [Concomitant]
     Active Substance: REPAGLINIDE
     Indication: Product used for unknown indication
     Route: 048
     Dates: start: 2018
  11. REPAGLINIDE [Concomitant]
     Active Substance: REPAGLINIDE
  12. REPAGLINIDE [Concomitant]
     Active Substance: REPAGLINIDE
  13. LIPICARE [Concomitant]
     Indication: Pruritus
     Dosage: 1 DOSAGE FORM (1 DF= 1 UNITS NOS)
     Route: 061
     Dates: start: 20200915
  14. LIPICARE [Concomitant]
  15. LIPICARE [Concomitant]
  16. IRBESARTAN [Concomitant]
     Active Substance: IRBESARTAN
     Indication: Product used for unknown indication
     Dosage: 300 MILLIGRAM
     Route: 048
     Dates: start: 2018
  17. GLUCOPHAGE [Concomitant]
     Active Substance: METFORMIN HYDROCHLORIDE
     Indication: Product used for unknown indication
     Route: 048
     Dates: start: 2018
  18. ESOMEPRAZOLE MAGNESIUM [Concomitant]
     Active Substance: ESOMEPRAZOLE MAGNESIUM
     Indication: Product used for unknown indication
     Route: 048
     Dates: start: 2018
  19. DEXERYL [Concomitant]
     Indication: Pruritus
     Dosage: 1 DOSAGE FORM (1 DF = 1 UNITS NOS)
     Route: 061
     Dates: start: 20200915
  20. ATARAX [Concomitant]
     Active Substance: HYDROXYZINE HYDROCHLORIDE
     Indication: Pruritus
     Route: 048
     Dates: start: 20200918

REACTIONS (1)
  - Myocarditis [Fatal]

NARRATIVE: CASE EVENT DATE: 20200929
